FAERS Safety Report 6395317-8 (Version None)
Quarter: 2009Q4

REPORT INFORMATION
  Report Type: 
  Country: None (occurrence: None)
  Receive Date: 20091009
  Receipt Date: 20091005
  Transmission Date: 20100525
  Serious: Yes (Hospitalization)
  Sender: FDA-Public Use
  Company Number: B0538887A

PATIENT
  Sex: Female

DRUGS (8)
  1. LAMICTAL [Suspect]
     Indication: BIPOLAR I DISORDER
     Dosage: 25MG PER DAY
     Route: 048
     Dates: start: 20080910, end: 20080918
  2. PREDNISOLONE [Concomitant]
     Indication: SYSTEMIC LUPUS ERYTHEMATOSUS
     Dosage: 5MG PER DAY
     Route: 048
     Dates: start: 20080826
  3. PREDNISOLONE [Concomitant]
     Dosage: 4MG PER DAY
  4. FOSAMAC [Concomitant]
     Indication: OSTEOPOROSIS PROPHYLAXIS
     Route: 048
     Dates: start: 20080826
  5. MUCOSTA [Concomitant]
     Indication: GASTRITIS PROPHYLAXIS
     Dosage: 300MG PER DAY
     Route: 048
     Dates: start: 20080826
  6. SELBEX [Concomitant]
     Indication: GASTRITIS PROPHYLAXIS
     Dosage: 150MG PER DAY
     Route: 048
     Dates: start: 20080826
  7. LANDSEN [Concomitant]
     Indication: BIPOLAR I DISORDER
     Dosage: 2MG PER DAY
     Route: 048
     Dates: start: 20080604
  8. LITHIUM CARBONATE [Concomitant]
     Indication: BIPOLAR I DISORDER
     Dosage: 200MG PER DAY
     Route: 048
     Dates: start: 20080504

REACTIONS (2)
  - DRUG ERUPTION [None]
  - RASH [None]
